FAERS Safety Report 16576847 (Version 2)
Quarter: 2019Q3

REPORT INFORMATION
  Report Type: Report from Study
  Country: FR (occurrence: FR)
  Receive Date: 20190716
  Receipt Date: 20190718
  Transmission Date: 20191004
  Serious: Yes (Hospitalization, Other)
  Sender: FDA-Public Use
  Company Number: FR-AUROBINDO-AUR-APL-2019-039653

PATIENT

DRUGS (7)
  1. MOXIFLOXACIN. [Suspect]
     Active Substance: MOXIFLOXACIN
     Indication: TUBERCULOSIS
     Dosage: UNK
     Route: 065
  2. CICLOSPORIN [Suspect]
     Active Substance: CYCLOSPORINE
     Indication: TUBERCULOSIS
     Dosage: UNK
     Route: 065
  3. BEDAQUILINE [Suspect]
     Active Substance: BEDAQUILINE
     Dosage: 600 MILLIGRAM, DAILY
     Route: 048
  4. PROTHIONAMIDE [Suspect]
     Active Substance: PROTIONAMIDE
     Indication: TUBERCULOSIS
     Dosage: UNK
     Route: 065
  5. CLOFAZIMINE [Suspect]
     Active Substance: CLOFAZIMINE
     Indication: TUBERCULOSIS
     Dosage: UNK
     Route: 065
  6. ETHAMBUTOL [Suspect]
     Active Substance: ETHAMBUTOL HYDROCHLORIDE
     Indication: TUBERCULOSIS
     Dosage: UNK
     Route: 065
  7. BEDAQUILINE [Suspect]
     Active Substance: BEDAQUILINE
     Indication: TUBERCULOSIS
     Dosage: 200 MILLIGRAM 3 TIMES A WEEK
     Route: 065

REACTIONS (4)
  - Accidental overdose [Unknown]
  - Atrioventricular block [Unknown]
  - Electrocardiogram QT prolonged [Recovered/Resolved]
  - Product communication issue [Unknown]
